FAERS Safety Report 24242544 (Version 1)
Quarter: 2024Q3

REPORT INFORMATION
  Report Type: Spontaneous
  Country: US (occurrence: None)
  Receive Date: 20240822
  Receipt Date: 20240822
  Transmission Date: 20241016
  Serious: Yes (Hospitalization)
  Sender: Public
  Company Number: None

PATIENT
  Age: 67 Year
  Sex: Male
  Weight: 101.25 kg

DRUGS (1)
  1. LOSARTAN [Suspect]
     Active Substance: LOSARTAN\LOSARTAN POTASSIUM
     Indication: Blood pressure increased
     Route: 048
     Dates: end: 20240811

REACTIONS (11)
  - Fall [None]
  - Skin laceration [None]
  - Fatigue [None]
  - Dizziness postural [None]
  - Libido decreased [None]
  - Incoherent [None]
  - Orthostatic hypotension [None]
  - Sleep disorder [None]
  - Visual impairment [None]
  - Therapy cessation [None]
  - Eyelid operation [None]

NARRATIVE: CASE EVENT DATE: 20240811
